FAERS Safety Report 5880050-9 (Version None)
Quarter: 2008Q3

REPORT INFORMATION
  Report Type: 
  Country: None (occurrence: None)
  Receive Date: 20080911
  Receipt Date: 20080911
  Transmission Date: 20090109
  Serious: Yes (Life-Threatening, Hospitalization, Disabling, Other)
  Sender: FDA-Public Use
  Company Number: None

PATIENT
  Age: 75 Year
  Sex: Female
  Weight: 76.2043 kg

DRUGS (1)
  1. PREMARIN VAGINAL CREAM- WYETH (CONJUGATE ESTROGENS) PHARMACEUTICAL CO. [Suspect]
     Indication: ATROPHIC VULVOVAGINITIS
     Dosage: 2 GRAMS USED DAILY - EVENING - VAGINA
     Route: 067
     Dates: start: 20070829, end: 20070915

REACTIONS (4)
  - HAEMORRHAGE [None]
  - INCORRECT DOSE ADMINISTERED [None]
  - LABORATORY TEST ABNORMAL [None]
  - SECRETION DISCHARGE [None]
